FAERS Safety Report 10150753 (Version 1)
Quarter: 2014Q2

REPORT INFORMATION
  Report Type: Spontaneous
  Country: US (occurrence: US)
  Receive Date: 20140502
  Receipt Date: 20140502
  Transmission Date: 20141212
  Serious: No
  Sender: FDA-Public Use
  Company Number: US-ASTRAZENECA-2013SE26449

PATIENT
  Sex: Female

DRUGS (3)
  1. PRILOSEC OTC [Suspect]
     Route: 048
  2. NEXIUM [Concomitant]
  3. COUMADIN [Concomitant]

REACTIONS (3)
  - Haemorrhage [Recovered/Resolved]
  - Laceration [Unknown]
  - Product package associated injury [Unknown]
